FAERS Safety Report 6841525-9 (Version None)
Quarter: 2010Q3

REPORT INFORMATION
  Report Type: 
  Country: None (occurrence: None)
  Receive Date: 20100714
  Receipt Date: 20090402
  Transmission Date: 20110219
  Serious: Yes (Other)
  Sender: FDA-Public Use
  Company Number: US-PFIZER INC-2007052820

PATIENT
  Sex: Female
  Weight: 100.9 kg

DRUGS (9)
  1. CHANTIX [Suspect]
     Indication: SMOKING CESSATION THERAPY
     Dosage: 0.5 MG, 1X/DAY
     Route: 048
     Dates: start: 20070620, end: 20070601
  2. MONTELUKAST SODIUM [Concomitant]
  3. MULTI-VITAMINS [Concomitant]
  4. COMBIVENT [Concomitant]
  5. ALBUTEROL [Concomitant]
  6. XANAX [Concomitant]
  7. LEXAPRO [Concomitant]
  8. PROMETHAZINE HYDROCHLORIDE [Concomitant]
  9. VITAMIN B COMPLEX CAP [Concomitant]

REACTIONS (2)
  - NAUSEA [None]
  - WEIGHT INCREASED [None]
